FAERS Safety Report 8318165-8 (Version None)
Quarter: 2012Q2

REPORT INFORMATION
  Report Type: 
  Country: None (occurrence: None)
  Receive Date: 20120427
  Receipt Date: 20120423
  Transmission Date: 20120825
  Serious: Yes (Hospitalization, Other)
  Sender: FDA-Public Use
  Company Number: DK-JNJFOC-20120400397

PATIENT
  Sex: Male

DRUGS (16)
  1. VINCRISTINE [Suspect]
     Route: 042
     Dates: start: 20110905
  2. VINCRISTINE [Suspect]
     Route: 042
     Dates: start: 20110822
  3. NEUPOGEN [Suspect]
     Route: 042
     Dates: start: 20110906
  4. CYCLOPHOSPHAMIDE [Suspect]
     Route: 042
     Dates: start: 20110905
  5. NEUPOGEN [Suspect]
     Indication: MALIGNANT LYMPHOID NEOPLASM
     Route: 042
     Dates: start: 20110823
  6. PREDNISONE [Suspect]
     Indication: MALIGNANT LYMPHOID NEOPLASM
     Route: 048
     Dates: start: 20110905
  7. PREDNISONE [Suspect]
     Route: 048
  8. CYCLOPHOSPHAMIDE [Suspect]
     Indication: MALIGNANT LYMPHOID NEOPLASM
     Dosage: START PERIOD - 203 DAYS
     Route: 042
     Dates: start: 20110822
  9. DOXORUBICIN HYDROCHLORIDE [Suspect]
     Indication: MALIGNANT LYMPHOID NEOPLASM
     Route: 042
     Dates: start: 20110905
  10. DOXORUBICIN HYDROCHLORIDE [Suspect]
     Route: 042
     Dates: start: 20110822
  11. WARFARIN SODIUM [Suspect]
     Indication: DEEP VEIN THROMBOSIS
     Route: 048
     Dates: start: 20111205
  12. RITUXIMAB [Suspect]
     Indication: MALIGNANT LYMPHOID NEOPLASM
     Route: 042
     Dates: start: 20110905
  13. RITUXIMAB [Suspect]
     Route: 042
     Dates: start: 20120123
  14. RITUXIMAB [Suspect]
     Route: 042
     Dates: start: 20110822
  15. PREDNISONE [Suspect]
     Dosage: START PERIOD - 203 DAYS
     Route: 048
     Dates: start: 20110822
  16. VINCRISTINE [Suspect]
     Indication: MALIGNANT LYMPHOID NEOPLASM
     Dosage: START PERIOD - 98 DAYS
     Route: 042
     Dates: start: 20111205

REACTIONS (1)
  - GASTRIC ULCER HAEMORRHAGE [None]
